FAERS Safety Report 11858717 (Version 1)
Quarter: 2015Q4

REPORT INFORMATION
  Report Type: Spontaneous
  Country: US (occurrence: US)
  Receive Date: 20151222
  Receipt Date: 20151222
  Transmission Date: 20160305
  Serious: Yes (Other)
  Sender: FDA-Public Use
  Company Number: US-BEH-2015056862

PATIENT
  Sex: Female
  Weight: 81 kg

DRUGS (18)
  1. HIZENTRA [Suspect]
     Active Substance: HUMAN IMMUNOGLOBULIN G
     Indication: HYPOGAMMAGLOBULINAEMIA
     Route: 058
     Dates: start: 20110225
  2. LAMISIL [Concomitant]
     Active Substance: TERBINAFINE HYDROCHLORIDE
  3. ALBUTEROL. [Concomitant]
     Active Substance: ALBUTEROL
  4. PREDNISONE. [Concomitant]
     Active Substance: PREDNISONE
  5. LEVAQUIN [Concomitant]
     Active Substance: LEVOFLOXACIN
  6. POTASSIUM CL ER [Concomitant]
  7. CLONAZEPAM. [Concomitant]
     Active Substance: CLONAZEPAM
  8. ATROVENT [Concomitant]
     Active Substance: IPRATROPIUM BROMIDE
  9. BACLOFEN. [Concomitant]
     Active Substance: BACLOFEN
  10. METOPROLOL [Concomitant]
     Active Substance: METOPROLOL
  11. IMITREX [Concomitant]
     Active Substance: SUMATRIPTAN\SUMATRIPTAN SUCCINATE
  12. CALCIUM [Concomitant]
     Active Substance: CALCIUM
  13. EPIPEN [Concomitant]
     Active Substance: EPINEPHRINE
  14. PREDNISONE. [Concomitant]
     Active Substance: PREDNISONE
  15. COMPLETE MULTIVITAMIN [Concomitant]
     Active Substance: VITAMINS
  16. PROMETHAZINE [Concomitant]
     Active Substance: PROMETHAZINE\PROMETHAZINE HYDROCHLORIDE
  17. ZYRTEC [Concomitant]
     Active Substance: CETIRIZINE HYDROCHLORIDE
  18. DIPHENHYDRAMINE. [Concomitant]
     Active Substance: DIPHENHYDRAMINE

REACTIONS (1)
  - Pneumonia [Unknown]
